FAERS Safety Report 20613685 (Version 2)
Quarter: 2022Q2

REPORT INFORMATION
  Report Type: Report from Study
  Country: US (occurrence: US)
  Receive Date: 20220319
  Receipt Date: 20220413
  Transmission Date: 20220721
  Serious: No
  Sender: FDA-Public Use
  Company Number: US-NOVARTISTESTPH-NVSC2022US062669

PATIENT
  Sex: Female

DRUGS (2)
  1. DEXAMETHASONE [Suspect]
     Active Substance: DEXAMETHASONE
     Indication: Product used for unknown indication
     Dosage: UNK
     Route: 065
  2. PROMACTA [Suspect]
     Active Substance: ELTROMBOPAG OLAMINE
     Indication: Product used for unknown indication
     Dosage: UNK
     Route: 065

REACTIONS (15)
  - Purpura [Unknown]
  - Anxiety [Unknown]
  - Platelet count abnormal [Unknown]
  - Cognitive disorder [Unknown]
  - Drug ineffective [Unknown]
  - Depressed mood [Unknown]
  - Eating disorder [Unknown]
  - Fatigue [Unknown]
  - Contusion [Unknown]
  - Quality of life decreased [Unknown]
  - Loss of personal independence in daily activities [Unknown]
  - Feeling abnormal [Unknown]
  - Hypokinesia [Unknown]
  - Negative thoughts [Unknown]
  - Restlessness [Unknown]
